FAERS Safety Report 5152375-6 (Version None)
Quarter: 2006Q4

REPORT INFORMATION
  Report Type: 
  Country: None (occurrence: None)
  Receive Date: 20061116
  Receipt Date: 20061107
  Transmission Date: 20070319
  Serious: Yes (Other)
  Sender: FDA-Public Use
  Company Number: BR-ELI_LILLY_AND_COMPANY-BR200611001303

PATIENT
  Age: 40 Year
  Sex: Male

DRUGS (5)
  1. FLUOXETINE HYDROCHLORIDE [Suspect]
     Indication: DYSTHYMIC DISORDER
     Dosage: 20 MG, DAILY (1/D)
     Route: 065
  2. OLANZAPINE [Suspect]
     Indication: ABNORMAL BEHAVIOUR
     Dosage: 5 MG, DAILY (1/D)
     Route: 065
  3. PHENOBARBITAL TAB [Concomitant]
     Indication: FAHR'S DISEASE
     Dosage: 100 MG, DAILY (1/D)
     Route: 065
  4. HALOPERIDOL [Concomitant]
     Indication: IMPULSIVE BEHAVIOUR
     Dosage: 1 MG, DAILY (1/D)
     Route: 065
  5. VALPROIC ACID [Concomitant]
     Dosage: 1000 MG, DAILY (1/D)
     Route: 065

REACTIONS (9)
  - ABNORMAL BEHAVIOUR [None]
  - BRADYKINESIA [None]
  - COORDINATION ABNORMAL [None]
  - DYSARTHRIA [None]
  - EPILEPSY [None]
  - GRAND MAL CONVULSION [None]
  - NUCLEAR MAGNETIC RESONANCE IMAGING BRAIN ABNORMAL [None]
  - PARKINSONISM [None]
  - THERAPY NON-RESPONDER [None]
